FAERS Safety Report 9465170 (Version 3)
Quarter: 2013Q3

REPORT INFORMATION
  Report Type: Spontaneous
  Country: US (occurrence: US)
  Receive Date: 20130819
  Receipt Date: 20130828
  Transmission Date: 20140515
  Serious: Yes (Death, Hospitalization)
  Sender: FDA-Public Use
  Company Number: US-BAXTER-2013BAX029313

PATIENT
  Age: 64 Year
  Sex: Female

DRUGS (1)
  1. DIANEAL LOW CALCIUM (ULTRABAG) [Suspect]
     Indication: PERITONEAL DIALYSIS
     Route: 033
     Dates: end: 20130803

REACTIONS (5)
  - Renal failure chronic [Fatal]
  - Peripheral vascular disorder [Fatal]
  - Cardiac disorder [Fatal]
  - Peritonitis [Fatal]
  - Gangrene [Fatal]
